FAERS Safety Report 23201224 (Version 3)
Quarter: 2023Q4

REPORT INFORMATION
  Report Type: Other
  Country: US (occurrence: US)
  Receive Date: 20231118
  Receipt Date: 20231118
  Transmission Date: 20240110
  Serious: No
  Sender: FDA-Public Use
  Company Number: US-TRAVERE-2023TVT00535

PATIENT
  Age: 46 Year
  Sex: Female

DRUGS (5)
  1. FILSPARI [Suspect]
     Active Substance: SPARSENTAN
     Indication: IgA nephropathy
     Dosage: 200 MG
     Route: 048
  2. FILSPARI [Suspect]
     Active Substance: SPARSENTAN
     Indication: Nervous system disorder
     Dosage: 400 MG
     Route: 048
     Dates: start: 20230920
  3. TYLENOL [Concomitant]
     Active Substance: ACETAMINOPHEN
  4. METOPROLOL TARTRATE 100 % POWDER [Concomitant]
  5. LISINOPRIL [Concomitant]
     Active Substance: LISINOPRIL

REACTIONS (3)
  - Pruritus [Unknown]
  - Rash erythematous [Unknown]
  - Skin erosion [Unknown]
